FAERS Safety Report 21583450 (Version 6)
Quarter: 2025Q4

REPORT INFORMATION
  Report Type: Report from Study
  Country: US (occurrence: US)
  Receive Date: 20221111
  Receipt Date: 20251217
  Transmission Date: 20260117
  Serious: Yes (Hospitalization, Other)
  Sender: AUROBINDO
  Company Number: US-AUROBINDO-AUR-APL-2022-042616

PATIENT
  Sex: Female
  Weight: 57 kg

DRUGS (13)
  1. BELINOSTAT [Suspect]
     Active Substance: BELINOSTAT
     Indication: Acute myeloid leukaemia
     Dosage: 7750 MILLIGRAM
     Route: 065
  2. BELINOSTAT [Suspect]
     Active Substance: BELINOSTAT
     Dosage: 7750 MILLIGRAM
     Route: 065
  3. BELINOSTAT [Suspect]
     Active Substance: BELINOSTAT
     Dosage: 7750 MILLIGRAM
     Route: 065
  4. BELINOSTAT [Suspect]
     Active Substance: BELINOSTAT
     Dosage: 7750 MILLIGRAM
     Route: 065
  5. BELINOSTAT [Suspect]
     Active Substance: BELINOSTAT
     Dosage: 7750 MILLIGRAM
     Route: 065
  6. BELINOSTAT [Suspect]
     Active Substance: BELINOSTAT
     Dosage: 1000 MILLIGRAM/SQ. METER, ONCE A DAY,  ON DAYS 1-5
  7. PEVONEDISTAT [Suspect]
     Active Substance: PEVONEDISTAT
     Indication: Acute myeloid leukaemia
     Dosage: 234 MILLIGRAM
     Route: 065
  8. PEVONEDISTAT [Suspect]
     Active Substance: PEVONEDISTAT
     Dosage: 234 MILLIGRAM
     Route: 065
  9. PEVONEDISTAT [Suspect]
     Active Substance: PEVONEDISTAT
     Dosage: 234 MILLIGRAM
     Route: 065
  10. PEVONEDISTAT [Suspect]
     Active Substance: PEVONEDISTAT
     Dosage: 234 MILLIGRAM
     Route: 065
  11. PEVONEDISTAT [Suspect]
     Active Substance: PEVONEDISTAT
     Dosage: 234 MILLIGRAM
     Route: 065
  12. PEVONEDISTAT [Suspect]
     Active Substance: PEVONEDISTAT
     Dosage: 50 MILLIGRAM/SQ. METER, ONCE A DAY, ON DAYS 1, 3, AND 5
     Route: 065
  13. TAZEMETOSTAT [Suspect]
     Active Substance: TAZEMETOSTAT
     Indication: Acute myeloid leukaemia
     Dosage: 800 MILLIGRAM
     Route: 065

REACTIONS (21)
  - Pain in extremity [Not Recovered/Not Resolved]
  - Electrocardiogram QT prolonged [Unknown]
  - Vitreous haemorrhage [Unknown]
  - Rectal haemorrhage [Unknown]
  - Oral pain [Unknown]
  - Epistaxis [Unknown]
  - Anxiety [Unknown]
  - Vomiting [Unknown]
  - Eye pruritus [Unknown]
  - Hypertension [Unknown]
  - Nausea [Unknown]
  - Dyspnoea [Unknown]
  - Paraesthesia [Unknown]
  - Peripheral sensory neuropathy [Unknown]
  - Subcutaneous abscess [Unknown]
  - Vulvovaginal pain [Unknown]
  - Asthenia [Not Recovered/Not Resolved]
  - Eye disorder [Unknown]
  - Dry skin [Unknown]
  - Skin ulcer [Unknown]
  - Muscular weakness [Unknown]

NARRATIVE: CASE EVENT DATE: 20220721
